FAERS Safety Report 7752864-1 (Version None)
Quarter: 2011Q3

REPORT INFORMATION
  Report Type: 
  Country: None (occurrence: None)
  Receive Date: 20110915
  Receipt Date: 20110911
  Transmission Date: 20111222
  Serious: Yes (Hospitalization, Other)
  Sender: FDA-Public Use
  Company Number: PHHY2011MX81088

PATIENT
  Age: 53 Year
  Sex: Male

DRUGS (4)
  1. AZILECT [Concomitant]
     Indication: PARKINSON'S DISEASE
     Dosage: 1 DF, UNK
     Route: 048
     Dates: start: 20100901
  2. PRAMIPEXOLE DIHYDROCHLORIDE [Concomitant]
     Indication: PARKINSON'S DISEASE
     Dosage: 2 DF, UNK
     Route: 048
     Dates: start: 20100901
  3. STALEVO 100 [Suspect]
     Indication: PARKINSON'S DISEASE
     Dosage: 3 TABLETS (200/150/37.5 MG) PER DAY
     Route: 048
  4. ALMETEC [Concomitant]
     Indication: HYPERTENSION
     Dosage: 1 DF, UNK
     Route: 048
     Dates: start: 20100901

REACTIONS (5)
  - HYPERTENSION [None]
  - TREMOR [None]
  - SPEECH DISORDER [None]
  - DYSSTASIA [None]
  - BLOOD GLUCOSE INCREASED [None]
